FAERS Safety Report 23461132 (Version 2)
Quarter: 2024Q3

REPORT INFORMATION
  Report Type: Report from Study
  Country: US (occurrence: US)
  Receive Date: 20240131
  Receipt Date: 20240822
  Transmission Date: 20241017
  Serious: Yes (Other)
  Sender: ABBVIE
  Company Number: US-ABBVIE-5608252

PATIENT
  Sex: Male

DRUGS (1)
  1. SKYRIZI [Suspect]
     Active Substance: RISANKIZUMAB-RZAA
     Indication: Psoriasis
     Route: 058
     Dates: start: 20220618

REACTIONS (4)
  - Hepatic cancer [Recovered/Resolved]
  - Colon cancer [Recovered/Resolved]
  - Scar [Recovered/Resolved]
  - Leukaemia [Not Recovered/Not Resolved]
